FAERS Safety Report 23624229 (Version 2)
Quarter: 2024Q3

REPORT INFORMATION
  Report Type: Spontaneous
  Country: CA (occurrence: CA)
  Receive Date: 20240312
  Receipt Date: 20240809
  Transmission Date: 20241016
  Serious: Yes (Hospitalization)
  Sender: ANI
  Company Number: CA-ANIPHARMA-2024-CA-001552

PATIENT
  Age: 61 Year
  Sex: Female
  Weight: 58 kg

DRUGS (22)
  1. CANDESARTAN CILEXETIL [Suspect]
     Active Substance: CANDESARTAN CILEXETIL
     Indication: Product used for unknown indication
     Dosage: 8 MG QD
     Route: 048
  2. LIFITEGRAST [Suspect]
     Active Substance: LIFITEGRAST
  3. MELOXICAM [Suspect]
     Active Substance: MELOXICAM
  4. METHYLPREDNISOLONE [Suspect]
     Active Substance: METHYLPREDNISOLONE
  5. ORENCIA [Suspect]
     Active Substance: ABATACEPT
  6. RABEPRAZOLE SODIUM [Suspect]
     Active Substance: RABEPRAZOLE SODIUM
  7. RABEPRAZOLE [Suspect]
     Active Substance: RABEPRAZOLE
     Dosage: 20 MG QD
     Route: 048
  8. SIMPONI [Suspect]
     Active Substance: GOLIMUMAB
  9. SULFASALAZINE [Suspect]
     Active Substance: SULFASALAZINE
  10. TYLENOL [Suspect]
     Active Substance: ACETAMINOPHEN
     Route: 048
  11. XELJANZ [Suspect]
     Active Substance: TOFACITINIB CITRATE
     Dosage: 5 MG BID
     Route: 048
  12. UPADACITINIB [Suspect]
     Active Substance: UPADACITINIB
  13. OLUMIANT [Suspect]
     Active Substance: BARICITINIB
  14. INFLIXIMAB [Suspect]
     Active Substance: INFLIXIMAB
  15. RINVOQ [Suspect]
     Active Substance: UPADACITINIB
  16. ACTEMRA [Suspect]
     Active Substance: TOCILIZUMAB
  17. BARICITINIB [Suspect]
     Active Substance: BARICITINIB
  18. CELEBREX [Suspect]
     Active Substance: CELECOXIB
     Dosage: 200 MG BID
     Route: 048
  19. CIMZIA [Suspect]
     Active Substance: CERTOLIZUMAB PEGOL
  20. DESOXIMETASONE [Suspect]
     Active Substance: DESOXIMETASONE
  21. DYMISTA [Suspect]
     Active Substance: AZELASTINE HYDROCHLORIDE\FLUTICASONE PROPIONATE
  22. ERELZI [Suspect]
     Active Substance: ETANERCEPT-SZZS

REACTIONS (6)
  - Arthritis [Unknown]
  - Blood folate decreased [Unknown]
  - Drug ineffective [Unknown]
  - Platelet count decreased [Unknown]
  - Pneumonia [Unknown]
  - White blood cell count decreased [Unknown]
